FAERS Safety Report 4963203-3 (Version None)
Quarter: 2006Q2

REPORT INFORMATION
  Report Type: 
  Country: None (occurrence: None)
  Receive Date: 20060405
  Receipt Date: 20060327
  Transmission Date: 20061013
  Serious: Yes (Life-Threatening, Hospitalization)
  Sender: FDA-Public Use
  Company Number: ES-AVENTIS-200611898EU

PATIENT
  Age: 73 Year
  Sex: Female

DRUGS (5)
  1. SEGURIL [Suspect]
     Indication: DRUG USE FOR UNKNOWN INDICATION
     Route: 048
     Dates: end: 20050827
  2. ALDACTONE [Suspect]
     Route: 048
     Dates: end: 20050827
  3. AMERIDE [Suspect]
     Route: 048
     Dates: end: 20050829
  4. DIOVAN [Suspect]
     Route: 048
     Dates: end: 20050827
  5. DICLOFENAC [Suspect]
     Route: 048
     Dates: start: 20050825, end: 20050827

REACTIONS (3)
  - HYPERKALAEMIA [None]
  - HYPONATRAEMIA [None]
  - RENAL FAILURE ACUTE [None]
